FAERS Safety Report 5155831-X (Version None)
Quarter: 2006Q4

REPORT INFORMATION
  Report Type: 
  Country: None (occurrence: None)
  Receive Date: 20061120
  Receipt Date: 20061120
  Transmission Date: 20070319
  Serious: Yes (Hospitalization)
  Sender: FDA-Public Use
  Company Number: None

PATIENT
  Age: 23 Year
  Sex: Female

DRUGS (1)
  1. GEODON [Suspect]
     Indication: AGITATED DEPRESSION
     Dosage: UNKNOWN

REACTIONS (1)
  - CONSTIPATION [None]
